FAERS Safety Report 18137013 (Version 1)
Quarter: 2020Q3

REPORT INFORMATION
  Report Type: Other
  Country: IT (occurrence: IT)
  Receive Date: 20200812
  Receipt Date: 20200812
  Transmission Date: 20201103
  Serious: Yes (Other)
  Sender: FDA-Public Use
  Company Number: IT-CELLTRION INC.-2020IT025060

PATIENT

DRUGS (11)
  1. CHLORPHENAMINE [Concomitant]
     Active Substance: CHLORPHENIRAMINE MALEATE
     Dosage: 10 MG, CYCLIC
     Dates: start: 20140901
  2. METHYLPREDNISOLONE. [Concomitant]
     Active Substance: METHYLPREDNISOLONE
     Dosage: 125 MG, CYCLIC
     Dates: start: 20140901
  3. CYCLOPHOSPHAMIDE. [Suspect]
     Active Substance: CYCLOPHOSPHAMIDE
     Indication: PRODUCT USED FOR UNKNOWN INDICATION
     Dosage: 996 MG, CYCLIC
     Dates: start: 20140901
  4. EPIRUBICIN HYDROCHLORIDE. [Suspect]
     Active Substance: EPIRUBICIN HYDROCHLORIDE
     Indication: PRODUCT USED FOR UNKNOWN INDICATION
     Dosage: 149.4 MG, CYCLIC
     Dates: start: 20140901
  5. DEXAMETHASONE. [Concomitant]
     Active Substance: DEXAMETHASONE
     Dosage: 12 MG, CYCLIC
     Dates: start: 20140901
  6. TROPISETRON [Concomitant]
     Active Substance: TROPISETRON
     Dosage: 5 MG, CYCLIC
     Dates: start: 20140901
  7. DOCETAXEL. [Suspect]
     Active Substance: DOCETAXEL
     Indication: PRODUCT USED FOR UNKNOWN INDICATION
     Dosage: 125.3 MG, CYCLIC
  8. RANITIDINE. [Concomitant]
     Active Substance: RANITIDINE
     Dosage: 50 MG, CYCLIC
     Dates: start: 20140901
  9. PALONOSETRON HYDROCHLORIDE. [Concomitant]
     Active Substance: PALONOSETRON HYDROCHLORIDE
     Dosage: 0.25 MG, CYCLIC
     Dates: start: 20140901
  10. TRASTUZUMAB (UNKNOWN) [Suspect]
     Active Substance: TRASTUZUMAB
     Indication: PRODUCT USED FOR UNKNOWN INDICATION
     Dosage: 504 MG, CYCLIC
     Dates: start: 20141124
  11. APREPITANT. [Concomitant]
     Active Substance: APREPITANT
     Dosage: 125 MG, CYCLIC
     Dates: start: 20140901

REACTIONS (1)
  - Acute pulmonary oedema [Unknown]

NARRATIVE: CASE EVENT DATE: 20190926
